FAERS Safety Report 11448874 (Version 4)
Quarter: 2015Q4

REPORT INFORMATION
  Report Type: Spontaneous
  Country: JP (occurrence: JP)
  Receive Date: 20150902
  Receipt Date: 20151001
  Transmission Date: 20160304
  Serious: Yes (Death, Life-Threatening, Hospitalization, Disabling, Other)
  Sender: FDA-Public Use
  Company Number: JP-SA-2015SA130540

PATIENT
  Age: 73 Year
  Sex: Male
  Weight: 43 kg

DRUGS (16)
  1. ELPLAT [Suspect]
     Active Substance: OXALIPLATIN
     Indication: GASTRIC CANCER
     Dosage: INFUSION SOLUTION
     Route: 041
     Dates: start: 20150701, end: 20150701
  2. ELPLAT [Suspect]
     Active Substance: OXALIPLATIN
     Indication: GASTRIC CANCER
     Route: 041
     Dates: start: 20150729, end: 20150729
  3. EMEND [Concomitant]
     Active Substance: APREPITANT
     Dates: start: 20150701, end: 20150801
  4. VITAMEDIN [Concomitant]
     Active Substance: CYANOCOBALAMIN\PYRIDOXINE HYDROCHLORIDE\THIAMINE
     Dates: start: 20150729, end: 20150729
  5. CARBOHYDRATES NOS/SODIUM LACTATE/SODIUM CHLORIDE/POTASSIUM CHLORIDE [Concomitant]
     Dates: start: 20150811, end: 20150813
  6. KCL [Concomitant]
     Active Substance: POTASSIUM CHLORIDE
     Dates: start: 20150813, end: 20150817
  7. TS-1 [Suspect]
     Active Substance: GIMERACIL\OTERACIL\TEGAFUR
     Indication: GASTRIC CANCER
     Route: 048
     Dates: start: 20150701, end: 20150722
  8. TS-1 [Suspect]
     Active Substance: GIMERACIL\OTERACIL\TEGAFUR
     Indication: GASTRIC CANCER
     Route: 048
     Dates: start: 20150729, end: 20150806
  9. ALOXI [Concomitant]
     Active Substance: PALONOSETRON HYDROCHLORIDE
     Dates: start: 20150701, end: 20150729
  10. DEXART [Concomitant]
     Active Substance: DEXAMETHASONE SODIUM PHOSPHATE
     Dates: start: 20150701, end: 20150729
  11. OMEPRAZOLE. [Concomitant]
     Active Substance: OMEPRAZOLE
     Dates: start: 20150811, end: 20150812
  12. SOLDEM 1 [Concomitant]
     Active Substance: DEXTROSE\SODIUM CHLORIDE\SODIUM LACTATE
     Dates: start: 20150807, end: 20150811
  13. CALCICOL [Concomitant]
     Active Substance: CALCIUM GLUCONATE
     Dates: start: 20150807, end: 20150809
  14. GLUCOSE [Concomitant]
     Active Substance: DEXTROSE
     Dates: start: 20150808, end: 20150811
  15. VENOGLOBULIN-IH [Concomitant]
     Dates: start: 20150812, end: 20150814
  16. INOVAN [Concomitant]
     Active Substance: DOPAMINE HYDROCHLORIDE
     Dates: start: 20150816, end: 20150817

REACTIONS (12)
  - Hypokalaemia [Not Recovered/Not Resolved]
  - Urinary tract infection [Not Recovered/Not Resolved]
  - Acute kidney injury [Recovering/Resolving]
  - Thrombocytopenia [Not Recovered/Not Resolved]
  - Decreased appetite [Unknown]
  - Febrile neutropenia [Fatal]
  - Colitis [Not Recovered/Not Resolved]
  - Hypocalcaemia [Unknown]
  - Anaemia [Not Recovered/Not Resolved]
  - Diarrhoea [Recovering/Resolving]
  - Hypoalbuminaemia [Not Recovered/Not Resolved]
  - Blood bilirubin increased [Not Recovered/Not Resolved]

NARRATIVE: CASE EVENT DATE: 20150701
